FAERS Safety Report 7316290-1 (Version None)
Quarter: 2011Q1

REPORT INFORMATION
  Report Type: 
  Country: None (occurrence: None)
  Receive Date: 20110225
  Receipt Date: 20110218
  Transmission Date: 20110831
  Serious: Yes (Other)
  Sender: FDA-Public Use
  Company Number: BR-PFIZER INC-2010177527

PATIENT
  Age: 69 Year
  Sex: Female
  Weight: 59 kg

DRUGS (2)
  1. LIPITOR [Suspect]
     Indication: BLOOD CHOLESTEROL INCREASED
     Dosage: 10 MG, 1X/DAY
     Route: 048
     Dates: start: 20101216, end: 20101227
  2. OLMETEC [Suspect]
     Dosage: 20 MG, 1X/DAY
     Route: 048
     Dates: start: 20101216

REACTIONS (11)
  - GASTROINTESTINAL SOUNDS ABNORMAL [None]
  - GASTROINTESTINAL DISORDER [None]
  - DYSURIA [None]
  - FLATULENCE [None]
  - BACK PAIN [None]
  - CHROMATURIA [None]
  - DYSSTASIA [None]
  - HEADACHE [None]
  - FEELING ABNORMAL [None]
  - NAUSEA [None]
  - DIARRHOEA [None]
